FAERS Safety Report 11755555 (Version 1)
Quarter: 2015Q4

REPORT INFORMATION
  Report Type: Spontaneous
  Country: US (occurrence: None)
  Receive Date: 20151118
  Receipt Date: 20151118
  Transmission Date: 20160304
  Serious: Yes (Disabling)
  Sender: FDA-Public Use
  Company Number: None

PATIENT
  Age: 61 Year
  Sex: Female
  Weight: 61.24 kg

DRUGS (2)
  1. PRO EYE CARE FROM BIOGETICA [Concomitant]
  2. DUREZOL [Suspect]
     Active Substance: DIFLUPREDNATE

REACTIONS (2)
  - Corneal scar [None]
  - Blindness unilateral [None]

NARRATIVE: CASE EVENT DATE: 20130404
